FAERS Safety Report 8546198-5 (Version None)
Quarter: 2012Q3

REPORT INFORMATION
  Report Type: 
  Country: None (occurrence: None)
  Receive Date: 20120727
  Receipt Date: 20120723
  Transmission Date: 20120928
  Serious: Yes (Death, Other)
  Sender: FDA-Public Use
  Company Number: PHHY2012US063192

PATIENT
  Age: 46 Year
  Sex: Female

DRUGS (11)
  1. DOXORUBICIN HYDROCHLORIDE [Suspect]
     Indication: DIFFUSE LARGE B-CELL LYMPHOMA
  2. ETOPOSIDE [Suspect]
     Indication: DIFFUSE LARGE B-CELL LYMPHOMA
  3. RITUXIMAB [Suspect]
     Indication: DIFFUSE LARGE B-CELL LYMPHOMA
  4. RADIOTHERAPY [Concomitant]
     Indication: DIFFUSE LARGE B-CELL LYMPHOMA
  5. IDARUBICIN HCL [Suspect]
     Indication: MYELODYSPLASTIC SYNDROME
     Dosage: 12 MG/M2, UNK
  6. CARMUSTINE [Suspect]
     Indication: DIFFUSE LARGE B-CELL LYMPHOMA
  7. PREDNISONE [Suspect]
     Indication: DIFFUSE LARGE B-CELL LYMPHOMA
  8. SUBEROYLANILIDE HYDROXAMIC ACID [Suspect]
     Indication: MYELODYSPLASTIC SYNDROME
     Dosage: 500 MG, TID
     Route: 048
  9. CYTARABINE [Suspect]
     Indication: DIFFUSE LARGE B-CELL LYMPHOMA
  10. CYCLOPHOSPHAMIDE [Suspect]
     Indication: DIFFUSE LARGE B-CELL LYMPHOMA
  11. ONCOVIN [Suspect]
     Indication: DIFFUSE LARGE B-CELL LYMPHOMA

REACTIONS (24)
  - HEPATIC INFARCTION [None]
  - APNOEA [None]
  - LUNG INFILTRATION [None]
  - COUGH [None]
  - ANAEMIA [None]
  - PANCREATIC INFARCTION [None]
  - UNRESPONSIVE TO STIMULI [None]
  - SMALL INTESTINAL HAEMORRHAGE [None]
  - DYSPNOEA [None]
  - HEMISENSORY NEGLECT [None]
  - ZYGOMYCOSIS [None]
  - CEREBRAL HAEMORRHAGE [None]
  - DIARRHOEA HAEMORRHAGIC [None]
  - CANDIDIASIS [None]
  - ASTHENIA [None]
  - PALLOR [None]
  - HEPATOSPLENOMEGALY [None]
  - DIARRHOEA [None]
  - THROMBOCYTOPENIA [None]
  - SKIN DISCOLOURATION [None]
  - PULMONARY HAEMORRHAGE [None]
  - PAIN IN EXTREMITY [None]
  - PYREXIA [None]
  - MYELODYSPLASTIC SYNDROME [None]
